FAERS Safety Report 10042759 (Version 2)
Quarter: 2014Q2

REPORT INFORMATION
  Report Type: Spontaneous
  Country: JP (occurrence: JP)
  Receive Date: 20140327
  Receipt Date: 20140407
  Transmission Date: 20141212
  Serious: Yes (Death)
  Sender: FDA-Public Use
  Company Number: JP-B.I. PHARMACEUTICALS,INC./RIDGEFIELD-2014-BI-13416NB

PATIENT
  Sex: 0

DRUGS (3)
  1. MICARDIS [Suspect]
     Indication: HYPERTENSION
     Dosage: 40 MG
     Route: 048
     Dates: start: 201303, end: 201403
  2. JANUVIA [Suspect]
     Indication: DIABETES MELLITUS
     Route: 048
  3. UNKNOWN MEDICATION [Concomitant]
     Route: 048

REACTIONS (1)
  - Interstitial lung disease [Fatal]
